FAERS Safety Report 5042194-3 (Version None)
Quarter: 2006Q2

REPORT INFORMATION
  Report Type: 
  Country: None (occurrence: None)
  Receive Date: 20060627
  Receipt Date: 20060615
  Transmission Date: 20061013
  Serious: No
  Sender: FDA-Public Use
  Company Number: 2006BH011136

PATIENT
  Sex: 0

DRUGS (1)
  1. KETOROLAC TROMETHAMINE [Suspect]
     Indication: PAIN
     Dosage: 0.6 MG/KG;EVERY 6 HR;IV
     Route: 042

REACTIONS (1)
  - GASTROINTESTINAL HAEMORRHAGE [None]
